FAERS Safety Report 6544039-9 (Version None)
Quarter: 2010Q1

REPORT INFORMATION
  Report Type: 
  Country: None (occurrence: None)
  Receive Date: 20100120
  Receipt Date: 20100112
  Transmission Date: 20100710
  Serious: Yes (Hospitalization, Other)
  Sender: FDA-Public Use
  Company Number: JP-PFIZER INC-2010005368

PATIENT
  Age: 34 Year
  Sex: Female
  Weight: 50.5 kg

DRUGS (12)
  1. SILDENAFIL CITRATE [Suspect]
     Indication: PULMONARY ARTERIAL HYPERTENSION
     Dosage: 20 MG, 3X/DAY
     Route: 048
     Dates: start: 20080618, end: 20080710
  2. FLOLAN [Concomitant]
     Dosage: UNK
     Route: 042
  3. FLUTIDE DISKUS [Concomitant]
     Dosage: UNK
     Route: 055
  4. SEREVENT [Concomitant]
     Dosage: UNK
     Route: 055
  5. MERCAZOLE [Concomitant]
     Dosage: UNK
     Route: 048
  6. SELBEX [Concomitant]
     Dosage: UNK
     Route: 048
  7. GASMOTIN [Concomitant]
     Dosage: UNK
     Route: 048
  8. RABEPRAZOLE SODIUM [Concomitant]
     Dosage: UNK
     Route: 048
  9. CERCINE [Concomitant]
     Dosage: UNK
     Route: 048
  10. ASPARA [Concomitant]
     Dosage: UNK
     Route: 048
  11. LOPEMIN [Concomitant]
     Dosage: UNK
     Route: 048
  12. MOHRUS [Concomitant]
     Dosage: UNK
     Route: 062

REACTIONS (3)
  - ANAEMIA [None]
  - HYPOKALAEMIA [None]
  - HYPOTENSION [None]
